FAERS Safety Report 9938117 (Version 2)
Quarter: 2014Q2

REPORT INFORMATION
  Report Type: Spontaneous
  Country: US (occurrence: US)
  Receive Date: 20140303
  Receipt Date: 20140505
  Transmission Date: 20141212
  Serious: Yes (Other)
  Sender: FDA-Public Use
  Company Number: US-AMGEN-USASP2014014340

PATIENT
  Age: 49 Year
  Sex: Female
  Weight: 79 kg

DRUGS (17)
  1. ENBREL [Suspect]
     Indication: ANKYLOSING SPONDYLITIS
     Dosage: 50 MG, QWK
     Route: 058
     Dates: start: 20131015
  2. TYLENOL [Concomitant]
     Dosage: 325 MG, Q4H AS NEEDED
     Route: 048
  3. CAFFEINE CITRATE [Concomitant]
     Dosage: UNK
  4. CIPRO                              /00697201/ [Concomitant]
     Dosage: 500 MG, Q12H
     Route: 048
  5. TEMOVATE [Concomitant]
     Dosage: 0.05 %, BID FOR UP TO 2 WEEKS
  6. INSPRA                             /01362602/ [Concomitant]
     Dosage: 25 MG, QD
     Route: 048
  7. ESTRING [Concomitant]
     Dosage: 2 MG, CHANGE EVERY 90 DAYS
     Route: 067
  8. ESTRACE [Concomitant]
     Dosage: 1 MG, QD
  9. PREMARIN [Concomitant]
     Dosage: 0.625 MG, QD
     Route: 048
  10. PROZAC [Concomitant]
     Dosage: 10 MG, QD 3 CAPSULES
  11. LAMICTAL [Concomitant]
     Dosage: TAKE I TABLET BY MOUTH ONCE DAILY WITH
     Route: 048
  12. LAMICTAL [Concomitant]
     Dosage: TAKE 1 TABLET BY MOUTH ONOE DAILY WITH
  13. TOPROL [Concomitant]
     Dosage: 100 MG, QD
  14. PRILOSEC                           /00661201/ [Concomitant]
     Dosage: 20 MG, QD
     Route: 048
  15. ZOFRAN                             /00955301/ [Concomitant]
     Route: 048
  16. PHENERGAN                          /00033002/ [Concomitant]
     Dosage: TAKE 1 TAB BY MOUTH FOUR TIMES DAILY, INSERT 1 SUPPOSITORY RECTALLY FOUR TIMES DAILY AS NEEDED FOR N
     Route: 054
  17. KENALOG                            /00031902/ [Concomitant]
     Dosage: 0.1 %, BID IF NEEDED

REACTIONS (4)
  - Visual impairment [Unknown]
  - Vision blurred [Unknown]
  - Asthenopia [Unknown]
  - Photophobia [Unknown]
